FAERS Safety Report 19583605 (Version 4)
Quarter: 2021Q3

REPORT INFORMATION
  Report Type: Spontaneous
  Country: US (occurrence: US)
  Receive Date: 20210720
  Receipt Date: 20210915
  Transmission Date: 20211014
  Serious: Yes (Hospitalization, Other)
  Sender: FDA-Public Use
  Company Number: US-KARYOPHARM-2021KPT000883

PATIENT

DRUGS (12)
  1. ZOFRAN [Concomitant]
     Active Substance: ONDANSETRON HYDROCHLORIDE
     Dosage: UNK
  2. PROCHLORPERAZINE MALEATE. [Concomitant]
     Active Substance: PROCHLORPERAZINE MALEATE
  3. ACYCLOVIR [ACICLOVIR] [Concomitant]
     Active Substance: ACYCLOVIR
  4. DEXAMETHASONE. [Concomitant]
     Active Substance: DEXAMETHASONE
  5. NORCO [Concomitant]
     Active Substance: ACETAMINOPHEN\HYDROCODONE BITARTRATE
  6. PANTOPRAZOLE [Concomitant]
     Active Substance: PANTOPRAZOLE
  7. XPOVIO [Suspect]
     Active Substance: SELINEXOR
     Indication: PLASMA CELL MYELOMA
     Dosage: 100 MG, WEEKLY
     Route: 048
     Dates: start: 20210628, end: 20210703
  8. LETROZOLE. [Concomitant]
     Active Substance: LETROZOLE
  9. CHLORHEXIDINE GLUCONATE. [Concomitant]
     Active Substance: CHLORHEXIDINE GLUCONATE
  10. XPOVIO [Suspect]
     Active Substance: SELINEXOR
     Dosage: 100 MG, WEEKLY
     Route: 048
     Dates: end: 20210902
  11. XPOVIO [Suspect]
     Active Substance: SELINEXOR
     Dosage: 100 MG, WEEKLY
     Route: 048
     Dates: start: 202107, end: 202107
  12. ONDANSETRON [Concomitant]
     Active Substance: ONDANSETRON

REACTIONS (4)
  - Renal disorder [Unknown]
  - Vomiting [Unknown]
  - Lower limb fracture [Unknown]
  - Haemolytic uraemic syndrome [Unknown]

NARRATIVE: CASE EVENT DATE: 20210629
